FAERS Safety Report 12907310 (Version 7)
Quarter: 2018Q2

REPORT INFORMATION
  Report Type: Report from Study
  Country: DE (occurrence: DE)
  Receive Date: 20161103
  Receipt Date: 20180606
  Transmission Date: 20180711
  Serious: Yes (Other)
  Sender: FDA-Public Use
  Company Number: DE-INCYTE CORPORATION-2016IN006854

PATIENT

DRUGS (22)
  1. NITROLINGUAL-SPRAY N [Concomitant]
     Indication: ANGINA PECTORIS
     Dosage: UNK UNK, PRN
     Route: 055
  2. ASPIRIN. [Concomitant]
     Active Substance: ASPIRIN
     Indication: ANGINA PECTORIS
     Dosage: 100 MG, UNK
     Route: 048
  3. RAMILICH [Concomitant]
     Active Substance: RAMIPRIL
     Indication: ATRIAL FIBRILLATION
     Dosage: 1.25 MG, BID
     Route: 048
     Dates: start: 201606
  4. NEUROPLANT [Concomitant]
     Indication: DEPRESSION
     Dosage: 60 MG, UNK
     Route: 048
  5. JAKAVI [Suspect]
     Active Substance: RUXOLITINIB
     Indication: POLYCYTHAEMIA VERA
     Dosage: 15 MG, QD
     Route: 048
     Dates: start: 20160215, end: 20170628
  6. RANEXA [Concomitant]
     Active Substance: RANOLAZINE
     Indication: ANGINA PECTORIS
     Dosage: 500 MG, UNK
     Route: 048
  7. DELIX [Concomitant]
     Active Substance: RAMIPRIL
     Indication: HYPERTENSION
     Dosage: 1.25 MG, QD
     Route: 048
     Dates: start: 20160510, end: 20160615
  8. BELOC-ZOC COMP [Concomitant]
     Active Substance: HYDROCHLOROTHIAZIDE\METOPROLOL SUCCINATE
     Indication: HYPERTENSION
     Dosage: 23.75 MG, BID
     Route: 048
     Dates: start: 20160510, end: 20160615
  9. METOHEXAL SUCC [Concomitant]
     Active Substance: METOPROLOL SUCCINATE
     Indication: HYPERTENSION
  10. XARELTO [Concomitant]
     Active Substance: RIVAROXABAN
     Indication: ATRIAL FIBRILLATION
     Dosage: 20 MG, QD
     Route: 048
     Dates: start: 20160510
  11. METOHEXAL SUCC [Concomitant]
     Active Substance: METOPROLOL SUCCINATE
     Indication: ATRIAL FIBRILLATION
     Dosage: 23.75 MG, BID
     Route: 048
     Dates: start: 201606
  12. JAKAVI [Suspect]
     Active Substance: RUXOLITINIB
     Dosage: 10 MG, QD
     Route: 048
     Dates: start: 20170629, end: 20171108
  13. BELOC-ZOC COMP [Concomitant]
     Active Substance: HYDROCHLOROTHIAZIDE\METOPROLOL SUCCINATE
     Indication: ATRIAL FIBRILLATION
  14. JANUMET [Concomitant]
     Active Substance: METFORMIN HYDROCHLORIDE\SITAGLIPTIN PHOSPHATE
     Indication: TYPE 2 DIABETES MELLITUS
     Dosage: METFORMIN HYDROCHLORIDE 1000 MG, SITAGLIPTIN PHOSPHATE MONOHYDRATE 50 MG
     Route: 048
  15. BUPROPION. [Concomitant]
     Active Substance: BUPROPION
     Indication: DEPRESSION
     Dosage: 150 MG, QD
     Route: 048
     Dates: start: 201607
  16. JAKAVI [Suspect]
     Active Substance: RUXOLITINIB
     Dosage: 15 MG, QD
     Route: 048
     Dates: start: 20171109
  17. GINKO [Concomitant]
     Active Substance: GINKGO
     Indication: DEPRESSION
     Dosage: 100 MG, UNK
     Route: 048
  18. SYMBICORT [Concomitant]
     Active Substance: BUDESONIDE\FORMOTEROL FUMARATE DIHYDRATE
     Indication: ANGINA PECTORIS
     Dosage: 1 DF (BUDESONIDE 160 MG , FORMOTEROL FUMARATE 4.5 MG), PRN
     Route: 048
     Dates: start: 2013
  19. PANTOPRAZOLE [Concomitant]
     Active Substance: PANTOPRAZOLE
     Indication: PRODUCT USED FOR UNKNOWN INDICATION
     Dosage: 20 MG, UNK
     Route: 048
  20. DOXYCYCLIN [Concomitant]
     Active Substance: DOXYCYCLINE
     Indication: INFECTION
     Dosage: 100 MG, Q12H
     Route: 048
     Dates: start: 20160311, end: 20160315
  21. DELIX [Concomitant]
     Active Substance: RAMIPRIL
     Indication: ATRIAL FIBRILLATION
  22. RAMILICH [Concomitant]
     Active Substance: RAMIPRIL
     Indication: HYPERTENSION

REACTIONS (4)
  - Hypertensive crisis [Recovered/Resolved]
  - Dizziness [Recovered/Resolved]
  - Blood pressure increased [Unknown]
  - Cervicobrachial syndrome [Recovered/Resolved]

NARRATIVE: CASE EVENT DATE: 20160510
